FAERS Safety Report 20517449 (Version 1)
Quarter: 2022Q1

REPORT INFORMATION
  Report Type: Spontaneous
  Country: US (occurrence: US)
  Receive Date: 20220225
  Receipt Date: 20220225
  Transmission Date: 20220424
  Serious: Yes (Life-Threatening, Hospitalization)
  Sender: FDA-Public Use
  Company Number: US-STRIDES ARCOLAB LIMITED-2022SP001698

PATIENT
  Age: 12 Year
  Sex: Female

DRUGS (1)
  1. AMLODIPINE [Suspect]
     Active Substance: AMLODIPINE BESYLATE
     Indication: Product used for unknown indication
     Dosage: UNK
     Route: 065

REACTIONS (5)
  - Acute respiratory distress syndrome [Recovered/Resolved]
  - Shock [Recovered/Resolved]
  - Pleural effusion [Recovered/Resolved]
  - Pericardial effusion [Recovered/Resolved]
  - Overdose [Unknown]
